FAERS Safety Report 11122701 (Version 4)
Quarter: 2015Q3

REPORT INFORMATION
  Report Type: Spontaneous
  Country: US (occurrence: US)
  Receive Date: 20150519
  Receipt Date: 20150706
  Transmission Date: 20151125
  Serious: Yes (Hospitalization, Disabling, Other)
  Sender: FDA-Public Use
  Company Number: US-009507513-1204USA00554

PATIENT
  Sex: Female
  Weight: 78.8 kg

DRUGS (4)
  1. BONIVA [Suspect]
     Active Substance: IBANDRONATE SODIUM
     Indication: OSTEOPOROSIS
     Dosage: 150 MG, QM
     Route: 048
     Dates: start: 2004, end: 20070305
  2. ALENDRONATE SODIUM. [Suspect]
     Active Substance: ALENDRONATE SODIUM
     Indication: OSTEOPOROSIS
     Dosage: 70 MG, QW
     Route: 048
     Dates: start: 20081024, end: 20090423
  3. IBANDRONATE SODIUM. [Suspect]
     Active Substance: IBANDRONATE SODIUM
     Dates: start: 2000, end: 2006
  4. FOSAMAX [Suspect]
     Active Substance: ALENDRONATE SODIUM
     Indication: OSTEOPOROSIS
     Dosage: 70 MG, QW
     Route: 048
     Dates: start: 2002, end: 2004

REACTIONS (105)
  - Intramedullary rod insertion [Unknown]
  - Bone graft [Unknown]
  - Stress fracture [Not Recovered/Not Resolved]
  - Humerus fracture [Recovered/Resolved]
  - Sinusitis fungal [Not Recovered/Not Resolved]
  - Essential hypertension [Unknown]
  - Iron deficiency anaemia [Unknown]
  - Blood albumin decreased [Unknown]
  - Sinus operation [Unknown]
  - Exostosis [Unknown]
  - Hyperlipidaemia [Unknown]
  - Fatigue [Unknown]
  - Pyuria [Unknown]
  - Surgery [Unknown]
  - Dyspepsia [Unknown]
  - Constipation [Not Recovered/Not Resolved]
  - Osteotomy [Unknown]
  - Incision site cellulitis [Recovering/Resolving]
  - Osteoporosis [Not Recovered/Not Resolved]
  - Intramedullary rod insertion [Unknown]
  - Vitamin D deficiency [Unknown]
  - Hypokalaemia [Recovering/Resolving]
  - Ankle fracture [Unknown]
  - Medical device implantation [Unknown]
  - Autoimmune thyroiditis [Unknown]
  - Fibromyalgia [Unknown]
  - Hyperparathyroidism [Unknown]
  - Obesity [Unknown]
  - Neuropathy peripheral [Unknown]
  - Myalgia [Unknown]
  - Fracture nonunion [Unknown]
  - Abscess [Recovering/Resolving]
  - Bone operation [Unknown]
  - Internal fixation of fracture [Unknown]
  - Medical device removal [Unknown]
  - Dry mouth [Unknown]
  - Kyphosis [Unknown]
  - Medical device removal [Unknown]
  - Device failure [Unknown]
  - Intervertebral disc operation [Unknown]
  - Bone operation [Unknown]
  - Bone operation [Unknown]
  - Hypothyroidism [Unknown]
  - Depression [Unknown]
  - Hysterectomy [Unknown]
  - Wound treatment [Unknown]
  - Injury [Unknown]
  - Middle insomnia [Unknown]
  - Ulnar nerve injury [Unknown]
  - Sensory loss [Unknown]
  - Medical device removal [Unknown]
  - Joint swelling [Unknown]
  - Abdominal pain [Unknown]
  - Femur fracture [Not Recovered/Not Resolved]
  - Bone graft [Unknown]
  - Seroma [Recovering/Resolving]
  - Low turnover osteopathy [Not Recovered/Not Resolved]
  - Open reduction of fracture [Unknown]
  - Device failure [Unknown]
  - Joint manipulation [Unknown]
  - Wound treatment [Unknown]
  - Debridement [Unknown]
  - Intervertebral disc protrusion [Unknown]
  - Stress [Unknown]
  - Polyuria [Unknown]
  - Femur fracture [Not Recovered/Not Resolved]
  - Humerus fracture [Recovered/Resolved]
  - Open reduction of fracture [Unknown]
  - Bone disorder [Not Recovered/Not Resolved]
  - Open reduction of fracture [Unknown]
  - Chronic kidney disease [Unknown]
  - Calcium deficiency [Unknown]
  - Back pain [Not Recovered/Not Resolved]
  - Anxiety [Unknown]
  - Megacolon [Unknown]
  - Clostridium difficile colitis [Recovering/Resolving]
  - Dysuria [Unknown]
  - Electrocardiogram abnormal [Unknown]
  - Dupuytren^s contracture [Unknown]
  - Traction [Unknown]
  - Asthenia [Unknown]
  - Medical device removal [Unknown]
  - Osteomyelitis [Recovering/Resolving]
  - Medical device removal [Unknown]
  - Lumbar spinal stenosis [Unknown]
  - Open reduction of fracture [Unknown]
  - Wrist fracture [Unknown]
  - Arteriosclerosis [Unknown]
  - Sinusitis [Recovered/Resolved]
  - Tonsillar disorder [Unknown]
  - Osteonecrosis [Unknown]
  - Shoulder operation [Unknown]
  - Femur fracture [Unknown]
  - Osteoarthritis [Unknown]
  - Irritable bowel syndrome [Unknown]
  - Intervertebral disc degeneration [Unknown]
  - Urinary tract infection [Unknown]
  - Pulmonary granuloma [Unknown]
  - Fracture nonunion [Recovered/Resolved]
  - Blood urine present [Unknown]
  - Amnesia [Unknown]
  - Periprosthetic fracture [Unknown]
  - Femur fracture [Recovering/Resolving]
  - Headache [Unknown]
  - Arthralgia [Unknown]

NARRATIVE: CASE EVENT DATE: 20061116
